FAERS Safety Report 9370755 (Version 1)
Quarter: 2013Q2

REPORT INFORMATION
  Report Type: Spontaneous
  Country: US (occurrence: US)
  Receive Date: 20130626
  Receipt Date: 20130626
  Transmission Date: 20140414
  Serious: No
  Sender: FDA-Public Use
  Company Number: US-TARO-2012P1065872

PATIENT
  Age: 52 Year
  Sex: Female
  Weight: 116.58 kg

DRUGS (9)
  1. ACETAZOLAMIDE TABLETS 250 MG [Suspect]
     Route: 048
     Dates: start: 201207
  2. ACETAZOLAMIDE TABLETS 250 MG [Suspect]
     Route: 048
     Dates: start: 201207
  3. ACETAZOLAMIDE TABLETS 250 MG [Suspect]
     Route: 048
     Dates: start: 201207
  4. CARVEDILOL [Concomitant]
  5. PRAVASTATIN [Concomitant]
  6. BACLOFEN [Concomitant]
  7. LISINOPRIL [Concomitant]
  8. METFORMIN [Concomitant]
  9. FISH OIL [Concomitant]

REACTIONS (1)
  - Vision blurred [Not Recovered/Not Resolved]
